FAERS Safety Report 11445869 (Version 1)
Quarter: 2015Q3

REPORT INFORMATION
  Report Type: Spontaneous
  Country: US (occurrence: US)
  Receive Date: 20150831
  Receipt Date: 20150831
  Transmission Date: 20151125
  Serious: No
  Sender: FDA-Public Use
  Company Number: US-ELI_LILLY_AND_COMPANY-US200808001133

PATIENT
  Age: 69 Year
  Sex: Female

DRUGS (14)
  1. CALCIUM WITH VITAMIN D [Concomitant]
     Active Substance: CALCIUM\VITAMIN D
     Dosage: 600 MG, UNK
  2. VITAMIN E [Concomitant]
     Active Substance: .ALPHA.-TOCOPHEROL
     Dosage: 400 U, UNK
  3. VENTOLIN [Concomitant]
     Active Substance: ALBUTEROL SULFATE
  4. VICODIN [Concomitant]
     Active Substance: ACETAMINOPHEN\HYDROCODONE BITARTRATE
  5. NEXIUM [Concomitant]
     Active Substance: ESOMEPRAZOLE MAGNESIUM
  6. ANTIINFLAMMATORY/ANTIRHEUMATIC PRODUCTS [Concomitant]
     Active Substance: UNSPECIFIED INGREDIENT
  7. THEOPHYLLINE [Concomitant]
     Active Substance: THEOPHYLLINE ANHYDROUS
     Dosage: 300 MG, UNK
  8. SENOKOT [Concomitant]
     Active Substance: SENNOSIDES
  9. KLONOPIN [Concomitant]
     Active Substance: CLONAZEPAM
  10. SEROQUEL [Concomitant]
     Active Substance: QUETIAPINE FUMARATE
  11. CYMBALTA [Suspect]
     Active Substance: DULOXETINE HYDROCHLORIDE
  12. WOMEN^S MULTI [Concomitant]
  13. METAMUCIL /00091301/ [Concomitant]
  14. ZOLOFT [Concomitant]
     Active Substance: SERTRALINE HYDROCHLORIDE

REACTIONS (1)
  - Adverse drug reaction [Unknown]
